FAERS Safety Report 4855438-5 (Version None)
Quarter: 2005Q4

REPORT INFORMATION
  Report Type: 
  Country: None (occurrence: None)
  Receive Date: 20051125
  Receipt Date: 20050505
  Transmission Date: 20060501
  Serious: Yes (Hospitalization)
  Sender: FDA-Public Use
  Company Number: 2005-BP-07531BP

PATIENT
  Age: 58 Year
  Sex: Female

DRUGS (7)
  1. AGGRENOX [Suspect]
     Dosage: (SEE TEXT, 25 MG/ 200 MG), PO
     Route: 048
  2. REBIF [Suspect]
     Indication: MULTIPLE SCLEROSIS
     Dosage: SEE TEXT (NR, 44 MCG THREE TIME A WEEK), NR
     Dates: end: 20031001
  3. AMBIEN [Concomitant]
  4. CELEXA [Concomitant]
  5. ALLEGRA [Concomitant]
  6. PREVACID [Concomitant]
  7. ACETAMINOPHEN [Concomitant]

REACTIONS (4)
  - GASTRITIS [None]
  - HEPATITIS [None]
  - INFLUENZA LIKE ILLNESS [None]
  - URINARY TRACT INFECTION [None]
